FAERS Safety Report 4983309-2 (Version None)
Quarter: 2006Q2

REPORT INFORMATION
  Report Type: 
  Country: None (occurrence: None)
  Receive Date: 20060426
  Receipt Date: 20051028
  Transmission Date: 20061013
  Serious: Yes (Death)
  Sender: FDA-Public Use
  Company Number: US-MERCK-0510USA09948

PATIENT
  Age: 66 Year
  Sex: Male
  Weight: 80 kg

DRUGS (13)
  1. VIOXX [Suspect]
     Indication: ARTHRITIS
     Route: 048
     Dates: start: 20001101, end: 20010101
  2. VIOXX [Suspect]
     Route: 048
     Dates: start: 20010101, end: 20010101
  3. VIOXX [Suspect]
     Route: 048
     Dates: start: 20010101, end: 20011001
  4. VIOXX [Suspect]
     Route: 048
     Dates: start: 20011001, end: 20040217
  5. ACIPHEX [Concomitant]
     Indication: GASTRIC PERFORATION
     Route: 065
     Dates: start: 20030101, end: 20030101
  6. ALPRAZOLAM [Concomitant]
     Indication: ANXIETY
     Route: 065
  7. ALPRAZOLAM [Concomitant]
     Indication: PANIC ATTACK
     Route: 065
  8. PAXIL [Concomitant]
     Indication: SLEEP DISORDER
     Route: 065
     Dates: start: 20020101, end: 20030101
  9. PAXIL [Concomitant]
     Indication: DEPRESSION
     Route: 065
     Dates: start: 20020101, end: 20030101
  10. TRAZODONE HYDROCHLORIDE [Concomitant]
     Route: 065
     Dates: start: 20000101, end: 20010101
  11. SKELAXIN [Concomitant]
     Indication: SCIATICA
     Route: 065
  12. VICODIN [Concomitant]
     Indication: BACK PAIN
     Route: 065
  13. METHYLPREDNISOLONE [Concomitant]
     Route: 065

REACTIONS (7)
  - ACUTE MYOCARDIAL INFARCTION [None]
  - BENIGN PROSTATIC HYPERPLASIA [None]
  - HERNIA [None]
  - HYPERCHOLESTEROLAEMIA [None]
  - HYPERTENSION [None]
  - INSOMNIA [None]
  - PEPTIC ULCER [None]
